FAERS Safety Report 25776661 (Version 1)
Quarter: 2025Q3

REPORT INFORMATION
  Report Type: Spontaneous
  Country: US (occurrence: US)
  Receive Date: 20250909
  Receipt Date: 20250909
  Transmission Date: 20251021
  Serious: No
  Sender: DOMPE FARMACEUTICI
  Company Number: US-FARMAPROD-202409-3176

PATIENT
  Sex: Male

DRUGS (9)
  1. OXERVATE [Suspect]
     Active Substance: CENEGERMIN-BKBJ
     Indication: Neurotrophic keratopathy
     Route: 047
     Dates: start: 20240802
  2. PRASTERONE [Concomitant]
     Active Substance: PRASTERONE
  3. POTASSIUM 595 [Concomitant]
  4. MELOXICAM [Concomitant]
     Active Substance: MELOXICAM
  5. NEOMYCIN, POLYMYXIN B, AND DEXAMETHASONE [Concomitant]
  6. PREDNISOLONE ACETATE [Concomitant]
     Active Substance: PREDNISOLONE ACETATE
  7. VITAMIN D3 [Concomitant]
     Active Substance: CHOLECALCIFEROL
  8. MAGNESIUM [Concomitant]
     Active Substance: MAGNESIUM
  9. HYDROCHLOROTHIAZIDE [Concomitant]
     Active Substance: HYDROCHLOROTHIAZIDE

REACTIONS (1)
  - Vision blurred [Unknown]
